FAERS Safety Report 14773376 (Version 1)
Quarter: 2018Q2

REPORT INFORMATION
  Report Type: Spontaneous
  Country: FR (occurrence: FR)
  Receive Date: 20180418
  Receipt Date: 20180418
  Transmission Date: 20180711
  Serious: Yes (Other)
  Sender: FDA-Public Use
  Company Number: FR-ASTRAZENECA-2018SE49656

PATIENT
  Sex: Female

DRUGS (1)
  1. OSIMERTINIB. [Suspect]
     Active Substance: OSIMERTINIB
     Dosage: UNKNOWN DOSAGE
     Route: 048

REACTIONS (3)
  - Metastases to central nervous system [Unknown]
  - Meningitis [Unknown]
  - Malignant neoplasm progression [Unknown]
